FAERS Safety Report 21473767 (Version 2)
Quarter: 2022Q4

REPORT INFORMATION
  Report Type: Spontaneous
  Country: US (occurrence: US)
  Receive Date: 20221018
  Receipt Date: 20221020
  Transmission Date: 20230113
  Serious: No
  Sender: FDA-Public Use
  Company Number: US-BAYER-2022A138634

PATIENT
  Age: 59 Year
  Sex: Female

DRUGS (3)
  1. ADEMPAS [Suspect]
     Active Substance: RIOCIGUAT
     Indication: Pulmonary hypertension
     Dosage: UNK
  2. ADEMPAS [Suspect]
     Active Substance: RIOCIGUAT
     Indication: Pulmonary hypertension
     Dosage: 1.5 MG, TID
     Dates: start: 202205
  3. ADEMPAS [Suspect]
     Active Substance: RIOCIGUAT
     Indication: Pulmonary hypertension
     Dosage: 2.5 MG, TID

REACTIONS (11)
  - Fatigue [None]
  - Gastrooesophageal reflux disease [Recovering/Resolving]
  - Nausea [None]
  - Initial insomnia [None]
  - Dyspepsia [Not Recovered/Not Resolved]
  - Head discomfort [None]
  - Hypotension [None]
  - Headache [None]
  - Dizziness [Recovering/Resolving]
  - Dizziness postural [Recovering/Resolving]
  - Dizziness exertional [Recovering/Resolving]

NARRATIVE: CASE EVENT DATE: 20220101
